FAERS Safety Report 8342932-8 (Version None)
Quarter: 2012Q2

REPORT INFORMATION
  Report Type: 
  Country: None (occurrence: None)
  Receive Date: 20120504
  Receipt Date: 20120504
  Transmission Date: 20120825
  Serious: Yes (Disabling)
  Sender: FDA-Public Use
  Company Number: None

PATIENT
  Age: 69 Year
  Sex: Female
  Weight: 52.8 kg

DRUGS (8)
  1. BEVACIZUMAB [Suspect]
     Indication: METASTATIC MALIGNANT MELANOMA
     Dosage: 15 MG/KG, Q3W, IV
     Route: 042
     Dates: start: 20111024, end: 20120322
  2. IBUPROFEN (ADVIL) [Concomitant]
  3. ATIVAN [Concomitant]
  4. IPILIMUMAB [Suspect]
     Indication: METASTATIC MALIGNANT MELANOMA
     Dosage: 3 MG/KG, Q3W, Q3M, IV
     Route: 042
     Dates: start: 20111024, end: 20120322
  5. PRILOSEC [Concomitant]
  6. MIRALAX [Concomitant]
  7. TYLENOL (CAPLET) [Concomitant]
  8. MULTI-VITAMIN [Concomitant]

REACTIONS (4)
  - RADIUS FRACTURE [None]
  - METASTATIC MALIGNANT MELANOMA [None]
  - FALL [None]
  - NEOPLASM PROGRESSION [None]
